FAERS Safety Report 9552690 (Version 1)
Quarter: 2013Q3

REPORT INFORMATION
  Report Type: Spontaneous
  Country: DE (occurrence: DE)
  Receive Date: 20130925
  Receipt Date: 20130925
  Transmission Date: 20140515
  Serious: No
  Sender: FDA-Public Use
  Company Number: DE-ELI_LILLY_AND_COMPANY-DE201309007106

PATIENT
  Age: 60 Year
  Sex: Male

DRUGS (3)
  1. CIALIS [Suspect]
     Indication: ERECTILE DYSFUNCTION
     Dosage: 10 MG, UNKNOWN
     Route: 048
     Dates: start: 201301, end: 201308
  2. AMLODIPIN                          /00972401/ [Concomitant]
     Indication: HYPERTENSION
  3. CANDESARTAN [Concomitant]
     Indication: HYPERTENSION
     Dosage: 60 MG, UNK

REACTIONS (3)
  - Photopsia [Recovered/Resolved]
  - Chromatopsia [Recovered/Resolved]
  - Visual field defect [Recovered/Resolved]
